FAERS Safety Report 18922421 (Version 1)
Quarter: 2021Q1

REPORT INFORMATION
  Report Type: Spontaneous
  Country: US (occurrence: US)
  Receive Date: 20210222
  Receipt Date: 20210222
  Transmission Date: 20210420
  Serious: No
  Sender: FDA-Public Use
  Company Number: US-ASTRAZENECA-2021A068678

PATIENT
  Sex: Female

DRUGS (8)
  1. ASPIRIN. [Suspect]
     Active Substance: ASPIRIN
     Indication: PRODUCT USED FOR UNKNOWN INDICATION
     Dosage: UNKNOWN
     Route: 065
  2. OMEPRAZOLE. [Interacting]
     Active Substance: OMEPRAZOLE
     Indication: GASTRIC DISORDER
     Dosage: DOSE UNKNOWN
     Route: 048
  3. FAMOTIDINE. [Interacting]
     Active Substance: FAMOTIDINE
     Indication: GASTRIC DISORDER
     Dosage: UNKNOWN
     Route: 065
  4. VITAMINS NOS [Concomitant]
     Active Substance: VITAMINS
  5. MELOXICAM. [Suspect]
     Active Substance: MELOXICAM
     Indication: PRODUCT USED FOR UNKNOWN INDICATION
     Dosage: UNKNOWN
     Route: 065
  6. PANTOPRAZOLE [Suspect]
     Active Substance: PANTOPRAZOLE
     Indication: PRODUCT USED FOR UNKNOWN INDICATION
     Dosage: UNKNOWN
     Route: 065
  7. OMEPRAZOLE. [Suspect]
     Active Substance: OMEPRAZOLE
     Indication: GASTRIC DISORDER
     Dosage: DOSE UNKNOWN
     Route: 048
     Dates: end: 202010
  8. ACYCLOVIR. [Concomitant]
     Active Substance: ACYCLOVIR

REACTIONS (8)
  - Hypersomnia [Unknown]
  - Dyspepsia [Unknown]
  - Bone pain [Not Recovered/Not Resolved]
  - Asthenia [Unknown]
  - Arthralgia [Not Recovered/Not Resolved]
  - Gastrointestinal disorder [Recovering/Resolving]
  - Pain [Unknown]
  - Drug interaction [Unknown]
